FAERS Safety Report 7035218-5 (Version None)
Quarter: 2010Q4

REPORT INFORMATION
  Report Type: 
  Country: None (occurrence: None)
  Receive Date: 20101008
  Receipt Date: 20100929
  Transmission Date: 20110411
  Serious: Yes (Hospitalization)
  Sender: FDA-Public Use
  Company Number: BR-ABBOTT-10P-020-0674649-00

PATIENT
  Sex: Male
  Weight: 79 kg

DRUGS (3)
  1. HUMIRA [Suspect]
     Indication: PRODUCT USED FOR UNKNOWN INDICATION
     Route: 058
     Dates: start: 20081001
  2. HUMIRA [Suspect]
     Dosage: INDUCTION DOSE
  3. HUMIRA [Suspect]
     Dosage: INDUCTION DOSE

REACTIONS (2)
  - CROHN'S DISEASE [None]
  - DRUG DOSE OMISSION [None]
